FAERS Safety Report 9159830 (Version 1)
Quarter: 2013Q1

REPORT INFORMATION
  Report Type: Spontaneous
  Country: CA (occurrence: None)
  Receive Date: 20130220
  Receipt Date: 20130220
  Transmission Date: 20140127
  Serious: Yes (Hospitalization, Other)
  Sender: FDA-Public Use
  Company Number: AUR-APL-2013-01445

PATIENT
  Age: 59 Year
  Sex: Female

DRUGS (3)
  1. QUETIAPINE [Suspect]
     Indication: HALLUCINATION
  2. CARBIDOPA-LEVODOPA [Concomitant]
  3. OXAZEPAM (OXAZEPAM) [Concomitant]

REACTIONS (6)
  - Encephalopathy [None]
  - Ascites [None]
  - Splenomegaly [None]
  - Hepatitis [None]
  - Liver injury [None]
  - Hepatic necrosis [None]
